FAERS Safety Report 23184449 (Version 3)
Quarter: 2023Q4

REPORT INFORMATION
  Report Type: Report from Study
  Country: US (occurrence: US)
  Receive Date: 20231115
  Receipt Date: 20231219
  Transmission Date: 20240110
  Serious: No
  Sender: FDA-Public Use
  Company Number: US-JNJFOC-20231059423

PATIENT
  Age: 75 Year
  Sex: Female

DRUGS (9)
  1. STELARA [Suspect]
     Active Substance: USTEKINUMAB
     Indication: Psoriasis
     Dosage: STRENGTH: 45.00 MG / 0.50 ML
     Route: 058
  2. STELARA [Suspect]
     Active Substance: USTEKINUMAB
     Indication: Psoriatic arthropathy
  3. ALPRAZOLAM [Concomitant]
     Active Substance: ALPRAZOLAM
  4. AMLODIPINE BESYLATE [Concomitant]
     Active Substance: AMLODIPINE BESYLATE
  5. GLIPIZIDE [Concomitant]
     Active Substance: GLIPIZIDE
  6. HYDROCODONE [Concomitant]
     Active Substance: HYDROCODONE
     Dosage: 5-325MG
  7. MECLIZINE HYDROCHLORIDE [Concomitant]
     Active Substance: MECLIZINE HYDROCHLORIDE
  8. OMEPRAZOLE [Concomitant]
     Active Substance: OMEPRAZOLE
  9. PREGABALIN [Concomitant]
     Active Substance: PREGABALIN

REACTIONS (3)
  - Product dose omission issue [Unknown]
  - Device issue [Unknown]
  - Device issue [Unknown]

NARRATIVE: CASE EVENT DATE: 20231020
